FAERS Safety Report 7423851-8 (Version None)
Quarter: 2011Q2

REPORT INFORMATION
  Report Type: 
  Country: None (occurrence: None)
  Receive Date: 20110419
  Receipt Date: 20110413
  Transmission Date: 20111010
  Serious: Yes (Death, Hospitalization, Other)
  Sender: FDA-Public Use
  Company Number: PHEH2007US07262

PATIENT
  Sex: Female
  Weight: 75.2 kg

DRUGS (40)
  1. ULTRAM [Concomitant]
  2. LYRICA [Concomitant]
  3. CARDIZEM [Concomitant]
  4. ELAVIL [Concomitant]
  5. VYTORIN [Concomitant]
  6. AMITRIPTYLINE [Concomitant]
  7. PRINIVIL [Concomitant]
  8. PRAVACHOL [Concomitant]
  9. HYDROCODONE [Concomitant]
  10. FORTEO [Concomitant]
  11. VITAMIN C W/VITAMIN D NOS/VITAMIN E [Concomitant]
  12. LISINOPRIL [Concomitant]
     Dosage: 20 MG, QD
     Route: 048
  13. KENALOG [Concomitant]
  14. VICODIN [Concomitant]
  15. PREDNISONE [Concomitant]
  16. OXYCODONE HCL [Concomitant]
  17. VITAMIN B-12 [Concomitant]
  18. DOXYCYCLINE [Concomitant]
  19. MORPHINE SULFATE [Concomitant]
  20. FOLIC ACID [Concomitant]
  21. CALCIUM [Concomitant]
  22. PHENERGAN [Concomitant]
  23. VITAMIN B6 [Concomitant]
  24. ZOMETA [Suspect]
     Indication: MULTIPLE MYELOMA
     Dosage: 3.3 MG MONTHLY
     Route: 042
     Dates: start: 20060705, end: 20061101
  25. TRICOR [Concomitant]
  26. NORTRIPTYLINE [Concomitant]
  27. SIMVASTATIN [Concomitant]
  28. NEOSPORIN (NEOMYCIN SULFATE/POLYMYXIN B SULFATE) [Concomitant]
  29. ACETAMINOPHEN [Concomitant]
  30. HYDROCHLOROTHIAZIDE [Concomitant]
     Dosage: 12.5 MG, QD
     Route: 048
  31. ULTRACET [Concomitant]
  32. NEURONTIN [Concomitant]
     Dosage: 300 MG, BID
     Route: 048
  33. TYLENOL PM [Concomitant]
  34. ALKERAN [Concomitant]
  35. AMOXICILLIN [Concomitant]
  36. FENTANYL [Concomitant]
     Route: 062
  37. METRONIDAZOLE [Concomitant]
  38. LIDODERM [Concomitant]
     Route: 062
  39. NEXIUM [Concomitant]
  40. THIAMINE [Concomitant]

REACTIONS (38)
  - METASTASES TO SPINE [None]
  - ATRIAL FIBRILLATION [None]
  - RESPIRATORY FAILURE [None]
  - HYPERCALCAEMIA [None]
  - NECK PAIN [None]
  - OSTEOPENIA [None]
  - CARDIAC FAILURE CONGESTIVE [None]
  - VIRAL INFECTION [None]
  - MENISCUS LESION [None]
  - NAUSEA [None]
  - HYPOKALAEMIA [None]
  - INTERVERTEBRAL DISC DISORDER [None]
  - PAIN IN JAW [None]
  - MUSCULOSKELETAL CHEST PAIN [None]
  - ANAEMIA [None]
  - MULTI-ORGAN FAILURE [None]
  - PNEUMONIA [None]
  - LUNG INFILTRATION [None]
  - HYPOXIA [None]
  - DYSPNOEA [None]
  - COMPRESSION FRACTURE [None]
  - VERTIGO [None]
  - CHONDROMALACIA [None]
  - PLEURAL EFFUSION [None]
  - DEHYDRATION [None]
  - INTERVERTEBRAL DISC DEGENERATION [None]
  - RENAL FAILURE [None]
  - CATARACT [None]
  - ASTHENIA [None]
  - OSTEONECROSIS OF JAW [None]
  - OSTEOARTHRITIS [None]
  - MULTIPLE MYELOMA [None]
  - NEUROPATHY PERIPHERAL [None]
  - ATELECTASIS [None]
  - CARDIOMEGALY [None]
  - URINARY TRACT INFECTION [None]
  - OESOPHAGITIS [None]
  - OSTEOLYSIS [None]
